FAERS Safety Report 9703342 (Version 1)
Quarter: 2013Q4

REPORT INFORMATION
  Report Type: Report from Study
  Country: IT (occurrence: IT)
  Receive Date: 20131122
  Receipt Date: 20131122
  Transmission Date: 20140711
  Serious: Yes (Other)
  Sender: FDA-Public Use
  Company Number: PHHY2013IT133683

PATIENT
  Sex: 0

DRUGS (1)
  1. IMATINIB [Suspect]
     Dosage: 400 MG

REACTIONS (2)
  - Splenic rupture [Unknown]
  - Haemorrhage [Unknown]
